FAERS Safety Report 4877996-7 (Version None)
Quarter: 2005Q4

REPORT INFORMATION
  Report Type: 
  Country: None (occurrence: None)
  Receive Date: 20051206
  Receipt Date: 20050908
  Transmission Date: 20060501
  Serious: No
  Sender: FDA-Public Use
  Company Number: USA0509107578

PATIENT
  Age: 76 Year
  Sex: Female

DRUGS (4)
  1. CYMBALTA [Suspect]
     Indication: PAIN
     Dosage: 60 MG
  2. ACETAMINOPHEN AND HYDROCODONE BITARTRATE [Concomitant]
  3. OXYCONTIN [Concomitant]
  4. THYROID TAB [Concomitant]

REACTIONS (4)
  - FATIGUE [None]
  - NAUSEA [None]
  - RETCHING [None]
  - SOMNOLENCE [None]
